FAERS Safety Report 9148871 (Version 1)
Quarter: 2013Q1

REPORT INFORMATION
  Report Type: Spontaneous
  Country: DK (occurrence: None)
  Receive Date: 20130130
  Receipt Date: 20130130
  Transmission Date: 20140127
  Serious: Yes (Disabling)
  Sender: FDA-Public Use
  Company Number: DK-SEPTODONT-200500647

PATIENT
  Age: 42 Year
  Sex: Female

DRUGS (1)
  1. SEPTANEST [Suspect]
     Indication: LOCAL ANAESTHESIA
     Route: 004
     Dates: start: 20030404

REACTIONS (4)
  - Hyperaesthesia [None]
  - Paraesthesia [None]
  - Speech disorder [None]
  - Eating disorder [None]
